FAERS Safety Report 13144075 (Version 1)
Quarter: 2017Q1

REPORT INFORMATION
  Report Type: Report from Study
  Country: None (occurrence: BR)
  Receive Date: 20170124
  Receipt Date: 20170124
  Transmission Date: 20170428
  Serious: Yes (Hospitalization, Other)
  Sender: FDA-Public Use
  Company Number: BR-ABBVIE-17P-020-1848168-00

PATIENT
  Age: 64 Year
  Sex: Female
  Weight: 76 kg

DRUGS (1)
  1. HUMIRA [Suspect]
     Active Substance: ADALIMUMAB
     Indication: RHEUMATOID ARTHRITIS
     Route: 058
     Dates: start: 20080110, end: 201608

REACTIONS (3)
  - Pulmonary oedema [Recovered/Resolved]
  - Pneumonia [Recovered/Resolved]
  - Spinal cord compression [Recovering/Resolving]

NARRATIVE: CASE EVENT DATE: 201611
